FAERS Safety Report 17466346 (Version 1)
Quarter: 2020Q1

REPORT INFORMATION
  Report Type: Spontaneous
  Country: ES (occurrence: ES)
  Receive Date: 20200227
  Receipt Date: 20200227
  Transmission Date: 20200409
  Serious: Yes (Other)
  Sender: FDA-Public Use
  Company Number: ES-ALLERGAN-2008656US

PATIENT
  Sex: Female

DRUGS (1)
  1. CARIPRAZINE HCL - BP [Suspect]
     Active Substance: CARIPRAZINE HYDROCHLORIDE
     Indication: MIXED ANXIETY AND DEPRESSIVE DISORDER
     Dosage: 3 MG, QD
     Route: 048
     Dates: start: 20191008, end: 20200121

REACTIONS (1)
  - Mood altered [Unknown]

NARRATIVE: CASE EVENT DATE: 20191127
